FAERS Safety Report 9879708 (Version 1)
Quarter: 2014Q1

REPORT INFORMATION
  Report Type: Spontaneous
  Country: US (occurrence: US)
  Receive Date: 20140206
  Receipt Date: 20140206
  Transmission Date: 20141002
  Serious: No
  Sender: FDA-Public Use
  Company Number: US-GILEAD-2014-0093685

PATIENT
  Age: 59 Year
  Sex: Male

DRUGS (3)
  1. SOVALDI [Suspect]
     Indication: CHRONIC HEPATITIS C
     Dosage: 400 MG, UNK
     Route: 065
     Dates: start: 20140106
  2. RIBAVIRIN [Suspect]
     Indication: CHRONIC HEPATITIS C
     Dosage: 800 MG, UNK
     Route: 065
  3. RIBAVIRIN [Suspect]
     Dosage: 600 MG, UNK
     Route: 065

REACTIONS (7)
  - Fatigue [Unknown]
  - Asthenia [Unknown]
  - Insomnia [Unknown]
  - Neck pain [Unknown]
  - Dyspepsia [Unknown]
  - Dyspepsia [Unknown]
  - Back pain [Unknown]
